FAERS Safety Report 9316691 (Version 2)
Quarter: 2013Q4

REPORT INFORMATION
  Report Type: Report from Study
  Country: CA (occurrence: CA)
  Receive Date: 20130530
  Receipt Date: 20131112
  Transmission Date: 20140711
  Serious: Yes (Death, Hospitalization)
  Sender: FDA-Public Use
  Company Number: CA-JNJFOC-20130517736

PATIENT
  Age: 72 Year
  Sex: Female
  Weight: 68.95 kg

DRUGS (26)
  1. REMICADE [Suspect]
     Indication: COLITIS ULCERATIVE
     Dosage: RECIEVED 23 TREATMENTS
     Route: 042
     Dates: end: 20130508
  2. REMICADE [Suspect]
     Indication: COLITIS ULCERATIVE
     Dosage: 40ML IV
     Route: 042
     Dates: start: 20100513, end: 20100522
  3. GLYCERINE [Concomitant]
     Dosage: 2.7G EQUALS TO 1 SUPPOSITORY IR FOR 3 DAYS IF CONSTIPATED WITH DULCOLAX (BISACODYL)
     Route: 065
     Dates: start: 20130512
  4. TYLENOL EXTRA STRENGTH [Concomitant]
     Route: 048
  5. TENORMIN [Concomitant]
     Route: 048
  6. CALCITE [Concomitant]
     Route: 048
  7. VITAMIN D [Concomitant]
     Dosage: ONCE A WEEK (ON FRIDAY)
     Route: 048
     Dates: start: 20130512
  8. SALOFALK [Concomitant]
     Route: 048
  9. PREMARIN [Concomitant]
     Route: 048
  10. MAGNESIUM [Concomitant]
     Dosage: MAGNESIUM GLUCOHEPTONATE
     Route: 048
     Dates: start: 20130515
  11. K-DUR [Concomitant]
     Route: 048
  12. LASIX [Concomitant]
     Dosage: 20MG EQUAL TO 1 TABLET PER OS QD AND 40 MG
     Route: 048
     Dates: start: 20130516
  13. FOSAMAX [Concomitant]
     Route: 048
  14. PREDNISONE [Concomitant]
     Route: 048
     Dates: start: 20130525
  15. ALDACTONE [Concomitant]
     Route: 048
  16. AVAPRO [Concomitant]
     Route: 048
  17. ZYLOPRIM [Concomitant]
     Dosage: WITH A MEAL OR SNACK
     Route: 048
  18. BISACODYL [Concomitant]
     Dosage: 1 IN 3 DAYS (AS NECESSARY)
     Route: 065
     Dates: start: 20130512
  19. DOCUSATE SODIUM [Concomitant]
     Route: 048
     Dates: start: 20130512
  20. POLYETHYLENE GLYCOL [Concomitant]
     Route: 048
     Dates: start: 20130512
  21. SENOKOT [Concomitant]
     Route: 048
     Dates: start: 20130512
  22. PANTOLOC [Concomitant]
     Dosage: 30 MINUTES BEFORE A MEAL
     Route: 048
     Dates: start: 20130510
  23. 5 AMINOSALICYLIC ACID [Concomitant]
     Dosage: 3600 MG EQUALS TO 3 TABLET PER OS. WITH A MEAL OR SNACK
     Route: 048
     Dates: start: 20130524
  24. ESTRACE [Concomitant]
     Route: 048
     Dates: start: 20130512
  25. MORPHINE [Concomitant]
     Indication: DYSPNOEA
     Dosage: 1 TABLET 3 OR 4 DAYS IN A WEEK (25 PER WEEK)
     Route: 048
     Dates: start: 2013
  26. MORPHINE [Concomitant]
     Indication: PAIN
     Dosage: 1 TABLET 3 OR 4 DAYS IN A WEEK (25 PER WEEK)
     Route: 048
     Dates: start: 2013

REACTIONS (2)
  - Lung neoplasm [Fatal]
  - Cholecystitis [Unknown]
